FAERS Safety Report 6834266-5 (Version None)
Quarter: 2010Q3

REPORT INFORMATION
  Report Type: 
  Country: None (occurrence: None)
  Receive Date: 20100712
  Receipt Date: 20070420
  Transmission Date: 20110219
  Serious: No
  Sender: FDA-Public Use
  Company Number: US-PFIZER INC-2007033763

PATIENT
  Sex: Female
  Weight: 44.5 kg

DRUGS (15)
  1. CHANTIX [Suspect]
     Indication: SMOKING CESSATION THERAPY
     Dates: start: 20070401
  2. ATENOLOL [Concomitant]
  3. NORVASC [Concomitant]
  4. GLYCERYL TRINITRATE [Concomitant]
     Route: 048
  5. CLONIDINE [Concomitant]
     Route: 048
  6. ALTACE [Concomitant]
  7. SIMVASTATIN [Concomitant]
  8. CYMBALTA [Concomitant]
  9. PLAVIX [Concomitant]
  10. ESTRACE [Concomitant]
  11. LYRICA [Concomitant]
  12. HYDROCHLOROTHIAZIDE [Concomitant]
  13. FUROSEMIDE [Concomitant]
  14. ROBAXIN [Concomitant]
  15. NITROGLYCERIN [Concomitant]
     Route: 060

REACTIONS (4)
  - CHEST DISCOMFORT [None]
  - DECREASED APPETITE [None]
  - DYSPNOEA [None]
  - NAUSEA [None]
